FAERS Safety Report 26097018 (Version 1)
Quarter: 2025Q4

REPORT INFORMATION
  Report Type: Spontaneous
  Country: EU (occurrence: EU)
  Receive Date: 20251127
  Receipt Date: 20251127
  Transmission Date: 20260117
  Serious: Yes (Other)
  Sender: NOVARTIS
  Company Number: EU-002147023-NVSC2025AT160627

PATIENT
  Sex: Female
  Weight: 54 kg

DRUGS (2)
  1. KISQALI [Suspect]
     Active Substance: RIBOCICLIB SUCCINATE
     Indication: Breast cancer metastatic
     Dosage: UNK
     Route: 048
     Dates: start: 20250918
  2. KISQALI [Suspect]
     Active Substance: RIBOCICLIB SUCCINATE
     Dosage: UNK, QD
     Route: 048

REACTIONS (2)
  - Tri-iodothyronine decreased [Recovered/Resolved]
  - Thyroxine decreased [Recovered/Resolved]

NARRATIVE: CASE EVENT DATE: 20250925
